FAERS Safety Report 22955191 (Version 3)
Quarter: 2023Q4

REPORT INFORMATION
  Report Type: Spontaneous
  Country: US (occurrence: US)
  Receive Date: 20230918
  Receipt Date: 20231227
  Transmission Date: 20240109
  Serious: Yes (Death, Hospitalization, Other)
  Sender: FDA-Public Use
  Company Number: US-PFIZER INC-202300117142

PATIENT
  Age: 87 Year
  Sex: Male
  Weight: 58.97 kg

DRUGS (1)
  1. VYNDAMAX [Suspect]
     Active Substance: TAFAMIDIS
     Indication: Amyloidosis
     Dosage: 61 MG
     Dates: start: 2022

REACTIONS (4)
  - Death [Fatal]
  - Skull fracture [Unknown]
  - Dyspnoea [Unknown]
  - Fall [Unknown]

NARRATIVE: CASE EVENT DATE: 20230907
